FAERS Safety Report 10452536 (Version 2)
Quarter: 2014Q3

REPORT INFORMATION
  Report Type: Spontaneous
  Country: US (occurrence: US)
  Receive Date: 20140915
  Receipt Date: 20140915
  Transmission Date: 20150326
  Serious: No
  Sender: FDA-Public Use
  Company Number: US-PFIZER INC-2014175790

PATIENT
  Age: 56 Year
  Sex: Female

DRUGS (9)
  1. LYRICA [Suspect]
     Active Substance: PREGABALIN
     Indication: FIBROMYALGIA
     Dosage: 50 MG, 3X/DAY
     Route: 048
     Dates: start: 20140501, end: 20140506
  2. CLONAZEPAM. [Concomitant]
     Active Substance: CLONAZEPAM
     Dosage: UNK
  3. ASA [Concomitant]
     Active Substance: ASPIRIN
  4. ULTRAM ER [Concomitant]
     Active Substance: TRAMADOL HYDROCHLORIDE
     Dosage: UNK
  5. LEVOTHYROXINE [Concomitant]
     Active Substance: LEVOTHYROXINE
     Dosage: UNK
  6. MOBIC [Concomitant]
     Active Substance: MELOXICAM
     Dosage: UNK
  7. CITALOPRAM [Concomitant]
     Active Substance: CITALOPRAM HYDROBROMIDE
     Dosage: UNK
  8. LORATADIN [Concomitant]
     Active Substance: LORATADINE
     Dosage: UNK
  9. DICLOFENAC [Concomitant]
     Active Substance: DICLOFENAC
     Dosage: UNK

REACTIONS (1)
  - Pain [Recovered/Resolved]
